FAERS Safety Report 6993570-0 (Version None)
Quarter: 2010Q3

REPORT INFORMATION
  Report Type: 
  Country: None (occurrence: None)
  Receive Date: 20100917
  Receipt Date: 20100907
  Transmission Date: 20110219
  Serious: Yes (Other)
  Sender: FDA-Public Use
  Company Number: PHHY2010US59343

PATIENT
  Sex: Male
  Weight: 90 kg

DRUGS (3)
  1. GLEEVEC [Suspect]
     Indication: DYSPEPSIA
     Dosage: 400 MG, QD
     Route: 048
     Dates: start: 20070301
  2. CELEBREX [Concomitant]
     Dosage: UNK
  3. CADUET [Concomitant]
     Dosage: UNK

REACTIONS (2)
  - HYPOAESTHESIA [None]
  - SURGERY [None]
